FAERS Safety Report 17847471 (Version 2)
Quarter: 2020Q3

REPORT INFORMATION
  Report Type: Spontaneous
  Country: US (occurrence: US)
  Receive Date: 20200601
  Receipt Date: 20200731
  Transmission Date: 20201103
  Serious: No
  Sender: FDA-Public Use
  Company Number: US-BAYER-2020-100633

PATIENT
  Age: 46 Year
  Sex: Female
  Weight: 87.8 kg

DRUGS (1)
  1. MIRENA [Suspect]
     Active Substance: LEVONORGESTREL
     Indication: CONTRACEPTION
     Dosage: 20 ?G PER DAY, CONTINUOUSLY
     Route: 015
     Dates: start: 20191129, end: 20200514

REACTIONS (4)
  - Device expulsion [Recovered/Resolved]
  - Dysmenorrhoea [Recovering/Resolving]
  - Menorrhagia [None]
  - Menstruation irregular [None]

NARRATIVE: CASE EVENT DATE: 20200514
